FAERS Safety Report 19172086 (Version 1)
Quarter: 2021Q2

REPORT INFORMATION
  Report Type: Spontaneous
  Country: FR (occurrence: FR)
  Receive Date: 20210423
  Receipt Date: 20210423
  Transmission Date: 20210717
  Serious: Yes (Death)
  Sender: FDA-Public Use
  Company Number: FR-ROCHE-2816578

PATIENT
  Age: 84 Year
  Sex: Male
  Weight: 61 kg

DRUGS (1)
  1. ROACTEMRA [Suspect]
     Active Substance: TOCILIZUMAB
     Indication: COVID-19
     Dosage: PAR INJECTION
     Route: 042
     Dates: start: 20210311, end: 20210317

REACTIONS (1)
  - Ischaemic stroke [Fatal]

NARRATIVE: CASE EVENT DATE: 20210321
